FAERS Safety Report 9796725 (Version 3)
Quarter: 2014Q1

REPORT INFORMATION
  Report Type: Report from Study
  Country: IL (occurrence: IL)
  Receive Date: 20140103
  Receipt Date: 20140328
  Transmission Date: 20141002
  Serious: Yes (Other)
  Sender: FDA-Public Use
  Company Number: IL-ABBVIE-13P-082-1158422-00

PATIENT
  Age: 35 Year
  Sex: 0

DRUGS (3)
  1. KALETRA 200/50 [Suspect]
     Indication: ANTIRETROVIRAL THERAPY
     Dosage: 2 TAB TWICE A DAY
     Route: 048
     Dates: start: 20110406
  2. COMBIVIR [Concomitant]
     Indication: ANTIRETROVIRAL THERAPY
     Route: 048
     Dates: start: 20110406
  3. FOLIC ACID [Concomitant]
     Indication: PREGNANCY

REACTIONS (4)
  - Abortion spontaneous [Unknown]
  - Headache [Unknown]
  - Asthenia [Unknown]
  - Haemoglobin decreased [Unknown]
